FAERS Safety Report 8302104-X (Version None)
Quarter: 2012Q2

REPORT INFORMATION
  Report Type: 
  Country: None (occurrence: None)
  Receive Date: 20120420
  Receipt Date: 20120410
  Transmission Date: 20120825
  Serious: Yes (Hospitalization)
  Sender: FDA-Public Use
  Company Number: US-VERTEX PHARMACEUTICALS INC.-AE-2012-005053

PATIENT
  Sex: Female

DRUGS (5)
  1. VX-950 [Suspect]
     Indication: HEPATITIS C
     Route: 048
     Dates: start: 20120312
  2. PEGASYS [Suspect]
     Indication: HEPATITIS C
     Route: 058
     Dates: start: 20120312
  3. RIBAVIRIN [Suspect]
     Indication: HEPATITIS C
     Route: 048
  4. ISENTRESS [Concomitant]
     Indication: HIV TEST POSITIVE
     Dates: start: 20110811
  5. TRUVADA [Concomitant]
     Indication: HIV TEST POSITIVE
     Dates: start: 20090707

REACTIONS (1)
  - RECTAL HAEMORRHAGE [None]
